FAERS Safety Report 25169771 (Version 2)
Quarter: 2025Q2

REPORT INFORMATION
  Report Type: Spontaneous
  Country: US (occurrence: US)
  Receive Date: 20250407
  Receipt Date: 20250425
  Transmission Date: 20250717
  Serious: No
  Sender: NOVARTIS
  Company Number: US-002147023-NVSC2025US053494

PATIENT
  Age: 36 Year
  Sex: Female

DRUGS (4)
  1. COSENTYX [Suspect]
     Active Substance: SECUKINUMAB
     Indication: Psoriatic arthropathy
     Dosage: 150 MG, Q4W
     Route: 058
     Dates: start: 20240724
  2. COSENTYX [Suspect]
     Active Substance: SECUKINUMAB
     Dosage: 150 MG, Q4W
     Route: 058
  3. COSENTYX [Suspect]
     Active Substance: SECUKINUMAB
     Dosage: 150 MG, Q4W
     Route: 058
  4. COSENTYX [Suspect]
     Active Substance: SECUKINUMAB
     Dosage: 150 MG, Q4W
     Route: 058

REACTIONS (1)
  - Maternal exposure during pregnancy [Unknown]

NARRATIVE: CASE EVENT DATE: 20241001
